FAERS Safety Report 12011046 (Version 1)
Quarter: 2016Q1

REPORT INFORMATION
  Report Type: Spontaneous
  Country: BR (occurrence: BR)
  Receive Date: 20160205
  Receipt Date: 20160205
  Transmission Date: 20160526
  Serious: Yes (Death, Hospitalization)
  Sender: FDA-Public Use
  Company Number: BR-ABBVIE-16K-020-1551881-00

PATIENT
  Age: 55 Year
  Sex: Female
  Weight: 70 kg

DRUGS (6)
  1. AZATHIOPRINE. [Concomitant]
     Active Substance: AZATHIOPRINE
     Indication: PRODUCT USED FOR UNKNOWN INDICATION
     Route: 048
  2. CYANOCOBALAMIN. [Concomitant]
     Active Substance: CYANOCOBALAMIN
     Indication: PRODUCT USED FOR UNKNOWN INDICATION
  3. ENALAPRIL MALEATE. [Concomitant]
     Active Substance: ENALAPRIL MALEATE
     Indication: HYPERTENSION
  4. PREDNISONE. [Concomitant]
     Active Substance: PREDNISONE
     Indication: CROHN^S DISEASE
     Route: 048
  5. LAMIVUDINE. [Concomitant]
     Active Substance: LAMIVUDINE
     Indication: PRODUCT USED FOR UNKNOWN INDICATION
     Route: 048
  6. HUMIRA [Suspect]
     Active Substance: ADALIMUMAB
     Indication: CROHN^S DISEASE
     Route: 058
     Dates: start: 2013, end: 201601

REACTIONS (9)
  - Chronic lymphocytic leukaemia [Fatal]
  - Respiratory tract infection [Fatal]
  - Immunodeficiency [Fatal]
  - Crohn^s disease [Unknown]
  - Dehydration [Fatal]
  - Hepatitis B [Fatal]
  - Abdominal infection [Fatal]
  - Hypertension [Fatal]
  - Septic shock [Fatal]

NARRATIVE: CASE EVENT DATE: 20160106
